FAERS Safety Report 5907540-4 (Version None)
Quarter: 2008Q4

REPORT INFORMATION
  Report Type: 
  Country: None (occurrence: None)
  Receive Date: 20081002
  Receipt Date: 20081002
  Transmission Date: 20090506
  Serious: Yes (Death, Hospitalization)
  Sender: FDA-Public Use
  Company Number: None

PATIENT
  Age: 62 Year
  Sex: Male
  Weight: 91 kg

DRUGS (2)
  1. WARFARIN SODIUM [Suspect]
     Dates: start: 20080630, end: 20080804
  2. ENOXAPARIN SODIUM [Suspect]
     Dosage: 100 MG BID PO
     Route: 048
     Dates: start: 20080729, end: 20080804

REACTIONS (7)
  - FALL [None]
  - HAEMORRHAGE [None]
  - HEADACHE [None]
  - INTRACARDIAC THROMBUS [None]
  - NAUSEA [None]
  - PERICARDITIS [None]
  - VISUAL IMPAIRMENT [None]
